FAERS Safety Report 5069228-4 (Version None)
Quarter: 2006Q3

REPORT INFORMATION
  Report Type: 
  Country: None (occurrence: None)
  Receive Date: 20060803
  Receipt Date: 20060705
  Transmission Date: 20061208
  Serious: Yes (Other)
  Sender: FDA-Public Use
  Company Number: PHBS2006JP10298

PATIENT
  Age: 39 Year
  Sex: Female
  Weight: 53 kg

DRUGS (2)
  1. TEGRETOL [Suspect]
     Indication: EPILEPSY
     Dosage: 400 MG/DAY
     Route: 048
     Dates: start: 20020901
  2. FOLIAMIN [Concomitant]
     Indication: EPILEPSY
     Dosage: 2 DF/DAY
     Route: 048
     Dates: start: 20020901

REACTIONS (5)
  - DELAYED DELIVERY [None]
  - DRUG EXPOSURE DURING PREGNANCY [None]
  - NORMAL NEWBORN [None]
  - UTERINE HAEMORRHAGE [None]
  - VACUUM EXTRACTOR DELIVERY [None]
